FAERS Safety Report 4752336-2 (Version None)
Quarter: 2005Q3

REPORT INFORMATION
  Report Type: 
  Country: None (occurrence: None)
  Receive Date: 20050825
  Receipt Date: 20050816
  Transmission Date: 20060218
  Serious: Yes (Other)
  Sender: FDA-Public Use
  Company Number: GB-GLAXOSMITHKLINE-B0390885A

PATIENT
  Age: 68 Year
  Weight: 85 kg

DRUGS (4)
  1. PAROXETINE [Suspect]
     Indication: DEPRESSION
     Dosage: 600MG PER DAY
     Route: 048
     Dates: start: 20050804, end: 20050804
  2. PARACETAMOL [Suspect]
     Dosage: 15G PER DAY
     Route: 048
     Dates: start: 20050804, end: 20050804
  3. QUETIAPINE FUMARATE [Suspect]
     Indication: MANIA
     Dosage: 3000MG PER DAY
     Route: 048
     Dates: start: 20050804, end: 20050804
  4. ALCOHOL [Concomitant]
     Dates: start: 20050804, end: 20050804

REACTIONS (1)
  - OVERDOSE [None]
